FAERS Safety Report 17914199 (Version 3)
Quarter: 2020Q4

REPORT INFORMATION
  Report Type: Spontaneous
  Country: JP (occurrence: JP)
  Receive Date: 20200619
  Receipt Date: 20201020
  Transmission Date: 20210113
  Serious: Yes (Other)
  Sender: FDA-Public Use
  Company Number: JP-AMGEN-JPNSP2020096422

PATIENT
  Age: 66 Year
  Sex: Female
  Weight: 51.5 kg

DRUGS (12)
  1. TARLIGE [Concomitant]
     Active Substance: MIROGABALIN BESYLATE
     Dosage: 5 MG, Q12H
     Route: 048
  2. KYPROLIS [Suspect]
     Active Substance: CARFILZOMIB
     Dosage: 37.4 MILLIGRAM/SQ. METER
     Route: 041
     Dates: start: 2020, end: 20200331
  3. VICCLOX [ACICLOVIR SODIUM] [Concomitant]
     Indication: PROPHYLAXIS
     Dosage: 200 MG, EVERYDAY
     Route: 048
  4. RABEPRAZOLE NA [Concomitant]
     Active Substance: RABEPRAZOLE SODIUM
     Indication: PROPHYLAXIS
     Dosage: 10 MG, EVERYDAY
     Route: 048
  5. AMLODIPINE [Concomitant]
     Active Substance: AMLODIPINE BESYLATE
     Dosage: 2.5 MG, EVERYDAY
     Route: 048
  6. MAGMITT [Concomitant]
     Active Substance: MAGNESIUM OXIDE
     Dosage: 330 MG, Q8H
     Route: 048
  7. LENADEX [Concomitant]
     Active Substance: DEXAMETHASONE ACETATE
     Indication: PLASMA CELL MYELOMA
     Dosage: 40 UNK
     Route: 048
     Dates: start: 20200217, end: 20200330
  8. FLUCONAZOLE. [Concomitant]
     Active Substance: FLUCONAZOLE
     Indication: PROPHYLAXIS
     Dosage: 100 MG, EVERYDAY
     Route: 048
  9. KYPROLIS [Suspect]
     Active Substance: CARFILZOMIB
     Indication: PLASMA CELL MYELOMA
     Dosage: 20 MILLIGRAM/SQ. METER
     Route: 041
     Dates: start: 20200217, end: 2020
  10. LENALIDOMIDE [Concomitant]
     Active Substance: LENALIDOMIDE
     Indication: PLASMA CELL MYELOMA
     Dosage: 25 UNK
     Route: 048
     Dates: start: 20200217, end: 20200405
  11. DENOTAS [Concomitant]
     Active Substance: CALCIUM CARBONATE\CHOLECALCIFEROL\MAGNESIUM CARBONATE
     Indication: PROPHYLAXIS
     Dosage: 2 DF, EVERYDAY
     Route: 048
  12. SAMTIREL [Concomitant]
     Active Substance: ATOVAQUONE
     Indication: PROPHYLAXIS
     Dosage: 5 ML, EVERYDAY
     Route: 048

REACTIONS (2)
  - Neutropenia [Recovered/Resolved]
  - Myelosuppression [Recovered/Resolved]

NARRATIVE: CASE EVENT DATE: 20200413
